FAERS Safety Report 7355452-4 (Version None)
Quarter: 2011Q1

REPORT INFORMATION
  Report Type: 
  Country: None (occurrence: None)
  Receive Date: 20110316
  Receipt Date: 20110301
  Transmission Date: 20110831
  Serious: Yes (Other)
  Sender: FDA-Public Use
  Company Number: AT-PURDUE-DEU-2011-0006942

PATIENT
  Age: 25 Year
  Sex: Male

DRUGS (1)
  1. MORPHINE [Suspect]
     Indication: DRUG ABUSE

REACTIONS (2)
  - DRUG ABUSE [None]
  - LOSS OF CONSCIOUSNESS [None]
